FAERS Safety Report 7388600-0 (Version None)
Quarter: 2011Q2

REPORT INFORMATION
  Report Type: 
  Country: None (occurrence: None)
  Receive Date: 20110401
  Receipt Date: 20110316
  Transmission Date: 20111010
  Serious: Yes (Other)
  Sender: FDA-Public Use
  Company Number: US-BAYER-2011-024126

PATIENT
  Sex: Female

DRUGS (2)
  1. VITAMIN B12 [Suspect]
     Dosage: DAILY DOSE 2500 ?G
     Route: 048
  2. AVELOX [Suspect]
     Indication: OROPHARYNGEAL PAIN
     Dosage: 400 MG, QD
     Dates: start: 20110113, end: 20110114

REACTIONS (2)
  - DIZZINESS [None]
  - DIZZINESS POSTURAL [None]
